FAERS Safety Report 8334317 (Version 2)
Quarter: 2012Q4

REPORT INFORMATION
  Report Type: 
  Country: FR (occurrence: FR)
  Receive Date: 20120112
  Receipt Date: 20120921
  Transmission Date: 20130627
  Serious: Yes (Hospitalization)
  Sender: FDA-Public Use
  Company Number: JP-ASTRAZENECA-2012SE01678

PATIENT
  Age: 80 Year
  Sex: Male

DRUGS (8)
  1. KENZEN [Suspect]
     Indication: HYPERTENSION
     Route: 048
     Dates: end: 201110
  2. CORDARONE [Suspect]
     Indication: HYPOTHYROIDISM
     Route: 065
  3. LASILIX [Suspect]
     Indication: HYPERTENSION
     Route: 048
     Dates: end: 201110
  4. METFORMINE [Concomitant]
     Indication: TYPE 2 DIABETES MELLITUS
     Route: 065
  5. DIAMICRON [Concomitant]
     Indication: TYPE 2 DIABETES MELLITUS
     Route: 065
  6. VITAMIN K ANTAGONIST [Concomitant]
     Indication: ATRIAL FIBRILLATION
     Route: 065
  7. ANTI-TUMOR NECROSIS FACTOR MONOCLONAL ANTIBODY [Concomitant]
     Indication: RHEUMATOID ARTHRITIS
     Route: 065
  8. JOSIR [Concomitant]
     Indication: BENIGN PROSTATIC HYPERPLASIA
     Route: 065

REACTIONS (2)
  - Hypothyroidism [Recovered/Resolved]
  - Renal failure acute [Recovered/Resolved]
